FAERS Safety Report 6771328-5 (Version None)
Quarter: 2010Q2

REPORT INFORMATION
  Report Type: 
  Country: None (occurrence: None)
  Receive Date: 20100616
  Receipt Date: 20100607
  Transmission Date: 20101027
  Serious: Yes (Hospitalization, Other)
  Sender: FDA-Public Use
  Company Number: US-ASTRAZENECA-2010SE26252

PATIENT
  Age: 58 Year
  Sex: Male
  Weight: 104.3 kg

DRUGS (4)
  1. NEXIUM [Suspect]
     Indication: GASTROOESOPHAGEAL REFLUX DISEASE
     Route: 048
     Dates: start: 20010101
  2. SULFONIMIDE [Concomitant]
  3. DILAUDID [Concomitant]
     Indication: PAIN
  4. OXYCONTIN [Concomitant]
     Indication: PAIN

REACTIONS (9)
  - ABASIA [None]
  - ACCIDENT [None]
  - AMNESIA [None]
  - FALL [None]
  - INJURY [None]
  - LOWER LIMB FRACTURE [None]
  - NEUROPATHY PERIPHERAL [None]
  - OSTEONECROSIS [None]
  - STAPHYLOCOCCAL INFECTION [None]
